FAERS Safety Report 5193578-4 (Version None)
Quarter: 2006Q4

REPORT INFORMATION
  Report Type: 
  Country: None (occurrence: None)
  Receive Date: 20061228
  Receipt Date: 20060911
  Transmission Date: 20070319
  Serious: No
  Sender: FDA-Public Use
  Company Number: US017941

PATIENT
  Age: 49 Year
  Sex: Female
  Weight: 88.6 kg

DRUGS (18)
  1. FLONASE [Suspect]
     Indication: MULTIPLE ALLERGIES
     Dosage: 50MCG IN THE MORNING
     Route: 045
     Dates: start: 20010101
  2. PROVIGIL [Suspect]
     Route: 048
     Dates: start: 20060615
  3. ESTRADIOL INJ [Suspect]
     Indication: HORMONE THERAPY
     Dosage: 1MG PER DAY
     Route: 048
     Dates: start: 20040101
  4. ZYRTEC [Suspect]
     Indication: MULTIPLE ALLERGIES
     Dosage: 10MG PER DAY
     Route: 048
     Dates: start: 20050101
  5. TRAZODONE HCL [Concomitant]
     Dates: start: 20010101
  6. VICODIN [Concomitant]
     Dates: start: 20060601
  7. THYROID TAB [Concomitant]
     Dates: start: 20060501
  8. ELIDEL [Concomitant]
     Dates: start: 20050101
  9. FLEXERIL [Concomitant]
     Dates: start: 20010101
  10. VITAMIN TAB [Concomitant]
     Dates: start: 20010101
  11. L-LYSINE [Concomitant]
     Dates: start: 20010101
  12. ASPIRIN [Concomitant]
     Dates: start: 20040101
  13. GLUCOSAMINE [Concomitant]
     Dates: start: 20010101
  14. MSM [Concomitant]
     Dates: start: 20010101
  15. MAGNESIUM [Concomitant]
     Dates: start: 20010101
  16. OMEGA 3 [Concomitant]
     Dates: start: 20010101
  17. COQ10 [Concomitant]
     Dates: start: 20010101
  18. ROYAL JELLY [Concomitant]
     Dates: start: 20010101

REACTIONS (5)
  - DEPRESSED MOOD [None]
  - DRUG INEFFECTIVE [None]
  - EMOTIONAL DISORDER [None]
  - FATIGUE [None]
  - HOT FLUSH [None]
